FAERS Safety Report 9738571 (Version 3)
Quarter: 2014Q2

REPORT INFORMATION
  Report Type: Spontaneous
  Country: AR (occurrence: AR)
  Receive Date: 20131209
  Receipt Date: 20140505
  Transmission Date: 20141212
  Serious: Yes (Other)
  Sender: FDA-Public Use
  Company Number: AR-AMGEN-ARGSP2013086273

PATIENT
  Age: 68 Year
  Sex: Male

DRUGS (8)
  1. ENBREL [Suspect]
     Indication: PSORIATIC ARTHROPATHY
     Dosage: 50 MG, WEEKLY
     Route: 058
     Dates: start: 20120106
  2. PRO-AIR [Concomitant]
     Dosage: UNK
  3. TRUSOPT [Concomitant]
     Dosage: UNK
  4. ISOPTOCARPINA [Concomitant]
     Dosage: UNK
  5. CARVEDILOL [Concomitant]
     Indication: HYPERTENSION
     Dosage: 2.5 MG, 2X/DAY
  6. T4 [Concomitant]
     Dosage: UNK
     Dates: start: 2004
  7. METHOTREXATE [Concomitant]
     Dosage: 7.5 MG, WEEKLY
     Dates: start: 2013
  8. FOLIC ACID [Concomitant]
     Dosage: UNK
     Route: 048

REACTIONS (4)
  - Diabetes mellitus [Not Recovered/Not Resolved]
  - Mobility decreased [Not Recovered/Not Resolved]
  - Chronic obstructive pulmonary disease [Not Recovered/Not Resolved]
  - Influenza [Recovered/Resolved]
